FAERS Safety Report 7445398-5 (Version None)
Quarter: 2011Q2

REPORT INFORMATION
  Report Type: 
  Country: None (occurrence: None)
  Receive Date: 20110420
  Receipt Date: 20110408
  Transmission Date: 20111010
  Serious: Yes (Other)
  Sender: FDA-Public Use
  Company Number: 1000020106

PATIENT

DRUGS (2)
  1. MIRTAZAPINE (MIRTAZAPINE) (TABLETS) (MIRTAZAPINE) [Concomitant]
  2. MEMANTINE [Suspect]
     Indication: DEMENTIA WITH LEWY BODIES
     Dosage: ORAL
     Route: 048

REACTIONS (2)
  - OFF LABEL USE [None]
  - CONVULSION [None]
